FAERS Safety Report 15233667 (Version 1)
Quarter: 2018Q3

REPORT INFORMATION
  Report Type: Spontaneous
  Country: US (occurrence: US)
  Receive Date: 20180802
  Receipt Date: 20180802
  Transmission Date: 20181010
  Serious: Yes (Disabling)
  Sender: FDA-Public Use
  Company Number: US-009507513-1807USA012124

PATIENT
  Age: 58 Year
  Sex: Male

DRUGS (3)
  1. STEGLATRO [Suspect]
     Active Substance: ERTUGLIFLOZIN PIDOLATE
     Indication: BLOOD GLUCOSE ABNORMAL
     Dosage: UNK
     Route: 048
     Dates: start: 20180710, end: 20180724
  2. GLIPIZIDE. [Concomitant]
     Active Substance: GLIPIZIDE
  3. METFORMIN [Concomitant]
     Active Substance: METFORMIN HYDROCHLORIDE

REACTIONS (5)
  - Salt craving [Recovering/Resolving]
  - Pollakiuria [Recovering/Resolving]
  - Hyperhidrosis [Recovering/Resolving]
  - Blood glucose increased [Recovering/Resolving]
  - Feeling abnormal [Recovering/Resolving]

NARRATIVE: CASE EVENT DATE: 201807
